FAERS Safety Report 8118888-X (Version None)
Quarter: 2012Q1

REPORT INFORMATION
  Report Type: 
  Country: None (occurrence: None)
  Receive Date: 20120202
  Receipt Date: 20120120
  Transmission Date: 20120608
  Serious: Yes (Hospitalization)
  Sender: FDA-Public Use
  Company Number: 2012P1003658

PATIENT
  Age: 74 Year
  Sex: Female

DRUGS (17)
  1. RIVASTIGMINE [Suspect]
     Indication: ACCIDENTAL EXPOSURE
     Dosage: 4.5 MG;X1;PO
     Route: 048
     Dates: start: 20110704, end: 20110704
  2. BLINDED THERAPY [Concomitant]
  3. DILTIAZEM HCL [Concomitant]
  4. LOSARTAN POTASSIUM [Concomitant]
  5. ASPIRIN [Concomitant]
  6. ATENOLOL [Concomitant]
  7. PYRIDOXINE (NO PREF. NAME) [Suspect]
     Indication: ACCIDENTAL EXPOSURE
     Dosage: 50 MG;X1;PO
     Route: 048
     Dates: start: 20110704, end: 20110704
  8. CHOLECALCIFEROL [Concomitant]
  9. UREA CREAM [Concomitant]
  10. PROTOPHAN [Concomitant]
  11. CALCIUM CARBONATE [Concomitant]
  12. AMLODIPINE BESYLATE [Concomitant]
  13. METOPROLOL (NO PREF. NAME) [Suspect]
     Indication: ACCIDENTAL EXPOSURE
     Dosage: 12.5 MG;X1;PO
     Route: 048
     Dates: start: 20110704, end: 20110704
  14. PEPCID [Suspect]
     Indication: ACCIDENTAL EXPOSURE
     Dosage: 20 MG;X1;PO
     Route: 048
     Dates: start: 20110704, end: 20110704
  15. ISOSORBIDE MONONITRATE [Suspect]
     Indication: ACCIDENTAL EXPOSURE
     Dosage: 20 MG;X1;PO
     Route: 048
     Dates: start: 20110704, end: 20110704
  16. INDAPAMIDE [Concomitant]
  17. METFORMIN HCL [Concomitant]

REACTIONS (5)
  - BLOOD GLUCOSE INCREASED [None]
  - DIZZINESS [None]
  - RASH [None]
  - ACCIDENTAL EXPOSURE [None]
  - VOMITING [None]
